FAERS Safety Report 20170713 (Version 1)
Quarter: 2021Q4

REPORT INFORMATION
  Report Type: Spontaneous
  Country: DE (occurrence: DE)
  Receive Date: 20211210
  Receipt Date: 20211210
  Transmission Date: 20220303
  Serious: Yes (Other)
  Sender: FDA-Public Use
  Company Number: DE-CISBIO-201300005

PATIENT
  Age: 48 Year
  Sex: Male

DRUGS (2)
  1. TECHNETIUM TC-99M ALBUMIN [Suspect]
     Active Substance: TECHNETIUM TC-99M ALBUMIN
     Route: 042
     Dates: start: 20130124, end: 20130124
  2. TECHNETIUM TC-99M SODIUM PERTECHNETATE [Suspect]
     Active Substance: TECHNETIUM TC-99M SODIUM PERTECHNETATE
     Route: 042
     Dates: start: 20130124, end: 20130124

REACTIONS (1)
  - Syncope [Recovered/Resolved]

NARRATIVE: CASE EVENT DATE: 20130124
